FAERS Safety Report 10704094 (Version 1)
Quarter: 2015Q1

REPORT INFORMATION
  Report Type: Spontaneous
  Country: FR (occurrence: FR)
  Receive Date: 20150112
  Receipt Date: 20150112
  Transmission Date: 20150721
  Serious: Yes (Hospitalization)
  Sender: FDA-Public Use
  Company Number: FR-SA-2015SA001741

PATIENT
  Age: 45 Year
  Sex: Male

DRUGS (11)
  1. CORTANCYL [Interacting]
     Active Substance: PREDNISONE
     Route: 048
     Dates: start: 20140927
  2. TRILEPTAL [Suspect]
     Active Substance: OXCARBAZEPINE
     Route: 048
     Dates: start: 20141116
  3. REMICADE [Concomitant]
     Active Substance: INFLIXIMAB
     Route: 042
     Dates: start: 20141007, end: 20141007
  4. TRILEPTAL [Suspect]
     Active Substance: OXCARBAZEPINE
     Route: 048
     Dates: start: 201408, end: 20141116
  5. CORTANCYL [Interacting]
     Active Substance: PREDNISONE
     Route: 048
     Dates: start: 20140527, end: 201406
  6. LYSANXIA [Suspect]
     Active Substance: PRAZEPAM
     Dosage: LONG-STANDING TREATMENT
     Route: 048
  7. REMICADE [Concomitant]
     Active Substance: INFLIXIMAB
     Route: 042
     Dates: start: 20140825, end: 20140825
  8. DEPAMIDE [Suspect]
     Active Substance: VALPROMIDE
     Dosage: LONG-STANDING TREATMENT
     Route: 048
  9. RIFINAH [Interacting]
     Active Substance: ISONIAZID\RIFAMPIN
     Route: 048
     Dates: start: 20140915, end: 20141128
  10. CYMBALTA [Suspect]
     Active Substance: DULOXETINE HYDROCHLORIDE
     Dosage: LONG-STANDING TREATMENT
     Route: 048
  11. REMICADE [Concomitant]
     Active Substance: INFLIXIMAB
     Route: 042
     Dates: start: 20140909, end: 20140909

REACTIONS (3)
  - Depression [Recovering/Resolving]
  - Drug interaction [Recovering/Resolving]
  - Tonic clonic movements [Recovering/Resolving]

NARRATIVE: CASE EVENT DATE: 201411
